FAERS Safety Report 5863754-3 (Version None)
Quarter: 2008Q3

REPORT INFORMATION
  Report Type: 
  Country: None (occurrence: None)
  Receive Date: 20080828
  Receipt Date: 20080817
  Transmission Date: 20090109
  Serious: Yes (Death)
  Sender: FDA-Public Use
  Company Number: BR-GENENTECH-264418

PATIENT
  Age: 17 Year
  Sex: Female

DRUGS (1)
  1. MABTHERA [Suspect]
     Indication: SYSTEMIC LUPUS ERYTHEMATOSUS
     Dosage: 1000 MG, UNK
     Route: 042
     Dates: start: 20080524

REACTIONS (5)
  - CARDIO-RESPIRATORY ARREST [None]
  - HERPES VIRUS INFECTION [None]
  - OLIGURIA [None]
  - RESPIRATORY FAILURE [None]
  - SEPSIS [None]
